FAERS Safety Report 25978069 (Version 2)
Quarter: 2025Q4

REPORT INFORMATION
  Report Type: Spontaneous
  Country: US (occurrence: US)
  Receive Date: 20251030
  Receipt Date: 20251102
  Transmission Date: 20260117
  Serious: No
  Sender: BAUSCH AND LOMB
  Company Number: US-BAUSCHBL-2025BNL030926

PATIENT

DRUGS (2)
  1. XIIDRA [Suspect]
     Active Substance: LIFITEGRAST
     Indication: Dry eye
  2. UNSPECIFIED INGREDIENT [Suspect]
     Active Substance: UNSPECIFIED INGREDIENT
     Indication: Dry eye

REACTIONS (2)
  - Drug ineffective [Unknown]
  - Product packaging quantity issue [Unknown]
